FAERS Safety Report 25551706 (Version 1)
Quarter: 2025Q3

REPORT INFORMATION
  Report Type: Spontaneous
  Country: US (occurrence: None)
  Receive Date: 20250714
  Receipt Date: 20250714
  Transmission Date: 20251021
  Serious: Yes (Hospitalization)
  Sender: FDA-CTU
  Company Number: None

PATIENT
  Age: 64 Year
  Sex: Female
  Weight: 74.25 kg

DRUGS (7)
  1. JARDIANCE [Suspect]
     Active Substance: EMPAGLIFLOZIN
     Indication: Type 2 diabetes mellitus
     Route: 048
  2. METOPROLOL [Concomitant]
     Active Substance: METOPROLOL
  3. CLOPIDOGREL [Concomitant]
     Active Substance: CLOPIDOGREL BISULFATE
  4. MINOXIDIL [Concomitant]
     Active Substance: MINOXIDIL
  5. BASAGLAR [Concomitant]
     Active Substance: INSULIN GLARGINE
  6. FIASP [Concomitant]
     Active Substance: INSULIN ASPART
  7. MOUNJARO [Concomitant]
     Active Substance: TIRZEPATIDE

REACTIONS (2)
  - Peripheral ischaemia [None]
  - Toe amputation [None]

NARRATIVE: CASE EVENT DATE: 20250109
